FAERS Safety Report 18457855 (Version 1)
Quarter: 2020Q4

REPORT INFORMATION
  Report Type: Spontaneous
  Country: CN (occurrence: CN)
  Receive Date: 20201103
  Receipt Date: 20201103
  Transmission Date: 20210114
  Serious: Yes (Other)
  Sender: FDA-Public Use
  Company Number: CN-PFIZER INC-2020419632

PATIENT
  Age: 48 Year
  Sex: Female
  Weight: 70 kg

DRUGS (2)
  1. METHOTREXATE. [Suspect]
     Active Substance: METHOTREXATE
     Indication: BENIGN HYDATIDIFORM MOLE
     Dosage: 75 MG, 1X/DAY
     Route: 030
     Dates: start: 20201019, end: 20201021
  2. SODIUM CHLORIDE. [Concomitant]
     Active Substance: SODIUM CHLORIDE
     Indication: VEHICLE SOLUTION USE
     Dosage: 2 ML, 1X/DAY
     Route: 030
     Dates: start: 20201019, end: 20201021

REACTIONS (2)
  - Liver injury [Recovering/Resolving]
  - Hepatic function abnormal [Recovering/Resolving]

NARRATIVE: CASE EVENT DATE: 20201023
